FAERS Safety Report 22261845 (Version 2)
Quarter: 2023Q2

REPORT INFORMATION
  Report Type: Report from Study
  Country: AU (occurrence: AU)
  Receive Date: 20230428
  Receipt Date: 20230515
  Transmission Date: 20230721
  Serious: Yes (Hospitalization)
  Sender: FDA-Public Use
  Company Number: AU-ABBVIE-4741417

PATIENT
  Sex: Male

DRUGS (1)
  1. SKYRIZI [Suspect]
     Active Substance: RISANKIZUMAB-RZAA
     Indication: Psoriasis
     Dosage: EVERY 3 MONTHS. 75 MG- 2 SYRINGES
     Route: 058
     Dates: start: 202206

REACTIONS (2)
  - Cervical vertebral fracture [Recovering/Resolving]
  - Accident [Unknown]
